FAERS Safety Report 8037937 (Version 5)
Quarter: 2013Q3

REPORT INFORMATION
  Report Type: Spontaneous
  Country: BE (occurrence: BE)
  Receive Date: 20110715
  Receipt Date: 20130906
  Transmission Date: 20140515
  Serious: Yes (Disabling, Other)
  Sender: FDA-Public Use
  Company Number: BE-ASTRAZENECA-2011SE40625

PATIENT
  Age: 85 Year
  Sex: Male

DRUGS (2)
  1. ENTOCORT [Suspect]
     Indication: DIARRHOEA
     Dosage: 1X3 P.D, BEFORE BREAKFAST, 9 MG DAILY FOR 1.5 WEEK
     Route: 048
     Dates: start: 201106
  2. ENALAPRIL [Concomitant]
     Indication: HYPERTENSION
     Dosage: SINCE YEARS

REACTIONS (5)
  - Retinal infarction [Recovered/Resolved with Sequelae]
  - Blindness unilateral [Not Recovered/Not Resolved]
  - Vision blurred [Recovering/Resolving]
  - Visual impairment [Recovering/Resolving]
  - Pruritus [Recovered/Resolved]
